FAERS Safety Report 7609055-4 (Version None)
Quarter: 2011Q3

REPORT INFORMATION
  Report Type: 
  Country: None (occurrence: None)
  Receive Date: 20110706
  Receipt Date: 20110612
  Transmission Date: 20111222
  Serious: Yes (Hospitalization, Other)
  Sender: FDA-Public Use
  Company Number: 2011MA008132

PATIENT
  Age: 55 Year
  Sex: Male

DRUGS (7)
  1. ALLOPURINOL [Concomitant]
  2. CITALOPRAM HYDROBROMIDE [Concomitant]
  3. SERETIDE [Concomitant]
  4. KEPPRA [Concomitant]
  5. ALBUTEROL [Concomitant]
  6. ESLICARBAZEPINE ACETATE [Suspect]
     Indication: EPILEPSY
     Dosage: 800 MG; QD; PO
     Route: 048
     Dates: start: 20110505
  7. MIRTAZAPINE [Suspect]
     Indication: DEPRESSION
     Dosage: 15 MG; QD; PO
     Route: 048
     Dates: start: 20110424

REACTIONS (5)
  - DIZZINESS [None]
  - FALL [None]
  - PALPITATIONS [None]
  - ORTHOSTATIC HYPOTENSION [None]
  - DYSPNOEA [None]
